FAERS Safety Report 4499625-7 (Version None)
Quarter: 2004Q4

REPORT INFORMATION
  Report Type: 
  Country: None (occurrence: None)
  Receive Date: 20040928
  Receipt Date: 20040819
  Transmission Date: 20050328
  Serious: No
  Sender: FDA-Public Use
  Company Number: 04P-163-0271144-00

PATIENT
  Age: 52 Year
  Sex: Female

DRUGS (14)
  1. HUMIRA [Suspect]
     Indication: RHEUMATOID ARTHRITIS
     Dosage: 40 MG, 1 IN 2 WK, SUBCUTANEOUS
     Route: 058
     Dates: start: 20040721
  2. PREDNISONE [Concomitant]
  3. BUSPIRONE HCL [Concomitant]
  4. VICODIN [Concomitant]
  5. LORAZEPAM [Concomitant]
  6. VENLAFAXINE HYDROCHLORIDE [Concomitant]
  7. QUININE [Concomitant]
  8. MEDROXYPROGESTERONE ACETATE [Concomitant]
  9. ACTOSE [Concomitant]
  10. SPIRONOLACTONE [Concomitant]
  11. SERTRALINE HYDROCHLORIDE [Concomitant]
  12. INSULIN [Concomitant]
  13. OMEPRAZOLE [Concomitant]
  14. PROPRANOLOL HYDROCHLORIDE [Concomitant]

REACTIONS (1)
  - INJECTION SITE HAEMORRHAGE [None]
